FAERS Safety Report 12715682 (Version 1)
Quarter: 2016Q3

REPORT INFORMATION
  Report Type: Spontaneous
  Country: US (occurrence: US)
  Receive Date: 20160906
  Receipt Date: 20160906
  Transmission Date: 20161109
  Serious: No
  Sender: FDA-Public Use
  Company Number: US-DRREDDYS-USA/USA/15/0055074

PATIENT
  Sex: Male

DRUGS (1)
  1. FONDAPARINUX SODIUM 10 MG/0.8 ML [Suspect]
     Active Substance: FONDAPARINUX SODIUM
     Indication: BLOOD DISORDER

REACTIONS (2)
  - Injection site pain [Unknown]
  - Product physical issue [Unknown]
